FAERS Safety Report 23637110 (Version 1)
Quarter: 2024Q1

REPORT INFORMATION
  Report Type: Spontaneous
  Country: GB (occurrence: GB)
  Receive Date: 20240315
  Receipt Date: 20240315
  Transmission Date: 20240409
  Serious: Yes (Disabling)
  Sender: FDA-Public Use
  Company Number: None

PATIENT
  Weight: 55 kg

DRUGS (2)
  1. DULOXETINE HYDROCHLORIDE [Suspect]
     Active Substance: DULOXETINE HYDROCHLORIDE
     Indication: Pain
     Dosage: 20 MG, DAILY
     Route: 065
     Dates: start: 20240227
  2. GEDAREL [Concomitant]
     Indication: Dysmenorrhoea
     Dosage: UNK

REACTIONS (9)
  - Toothache [Recovering/Resolving]
  - Depressed level of consciousness [Recovering/Resolving]
  - Anisocoria [Not Recovered/Not Resolved]
  - Menstruation irregular [Not Recovered/Not Resolved]
  - Nausea [Recovering/Resolving]
  - Dizziness [Recovering/Resolving]
  - Poor quality sleep [Recovering/Resolving]
  - Somnolence [Recovering/Resolving]
  - Tremor [Not Recovered/Not Resolved]

NARRATIVE: CASE EVENT DATE: 20240227
